FAERS Safety Report 21562792 (Version 1)
Quarter: 2022Q4

REPORT INFORMATION
  Report Type: Spontaneous
  Country: US (occurrence: None)
  Receive Date: 20221104
  Receipt Date: 20221104
  Transmission Date: 20230113
  Serious: Yes (Death)
  Sender: FDA-Public Use
  Company Number: None

PATIENT
  Age: 89 Year
  Sex: Male

DRUGS (1)
  1. RETACRIT [Suspect]
     Active Substance: EPOETIN ALFA-EPBX
     Indication: Refractory anaemia with ringed sideroblasts
     Dosage: OTHER QUANTITY : 40,000U/ML?OTHER FREQUENCY : OTHER?
     Route: 058
     Dates: start: 202205

REACTIONS (1)
  - Death [None]

NARRATIVE: CASE EVENT DATE: 20221028
